FAERS Safety Report 10587617 (Version 4)
Quarter: 2015Q2

REPORT INFORMATION
  Report Type: Report from Study
  Country: US (occurrence: US)
  Receive Date: 20141117
  Receipt Date: 20150604
  Transmission Date: 20150821
  Serious: Yes (Hospitalization, Other)
  Sender: FDA-Public Use
  Company Number: US-SA-2014SA029849

PATIENT
  Age: 64 Year
  Sex: Female

DRUGS (2)
  1. AUBAGIO [Suspect]
     Active Substance: TERIFLUNOMIDE
     Indication: MULTIPLE SCLEROSIS
     Route: 048
     Dates: start: 20130423, end: 20150420
  2. TECFIDERA [Concomitant]
     Active Substance: DIMETHYL FUMARATE

REACTIONS (7)
  - Nasopharyngitis [Unknown]
  - Viral infection [Unknown]
  - Unevaluable event [Unknown]
  - Diarrhoea [Unknown]
  - Visual acuity reduced [Unknown]
  - Sinusitis bacterial [Unknown]
  - Therapeutic response decreased [Unknown]
